FAERS Safety Report 21537473 (Version 1)
Quarter: 2022Q4

REPORT INFORMATION
  Report Type: Spontaneous
  Country: US (occurrence: US)
  Receive Date: 20221101
  Receipt Date: 20221101
  Transmission Date: 20230113
  Serious: Yes (Death)
  Sender: FDA-Public Use
  Company Number: US-MORPHOSYS US-2022-MOR002515-US

PATIENT
  Sex: Male

DRUGS (1)
  1. MONJUVI [Suspect]
     Active Substance: TAFASITAMAB-CXIX
     Indication: Diffuse large B-cell lymphoma
     Dosage: 1060 MILLIGRAM, DAY 1, 4, 8, 11 AND 15 EVERY 28 DAYS
     Route: 042
     Dates: start: 20210122, end: 20210204

REACTIONS (1)
  - Death [Fatal]

NARRATIVE: CASE EVENT DATE: 20210217
